FAERS Safety Report 16259746 (Version 1)
Quarter: 2019Q2

REPORT INFORMATION
  Report Type: Spontaneous
  Country: US (occurrence: US)
  Receive Date: 20190501
  Receipt Date: 20190501
  Transmission Date: 20190711
  Serious: No
  Sender: FDA-Public Use
  Company Number: US-ELI_LILLY_AND_COMPANY-US201904013481

PATIENT
  Sex: Female

DRUGS (1)
  1. FORTEO [Suspect]
     Active Substance: TERIPARATIDE
     Indication: PRODUCT USED FOR UNKNOWN INDICATION
     Dosage: UNK UNK, UNKNOWN (JULY OF 2019 WILL BE TWO YEARS THAT ON FORTEO)
     Route: 065

REACTIONS (7)
  - Oral pain [Unknown]
  - Gingival pain [Not Recovered/Not Resolved]
  - Tooth disorder [Unknown]
  - Tooth fracture [Recovered/Resolved]
  - Toothache [Not Recovered/Not Resolved]
  - Pain in jaw [Not Recovered/Not Resolved]
  - Mastication disorder [Unknown]
